FAERS Safety Report 6982678-1 (Version None)
Quarter: 2010Q3

REPORT INFORMATION
  Report Type: 
  Country: None (occurrence: None)
  Receive Date: 20100909
  Receipt Date: 20100903
  Transmission Date: 20110219
  Serious: Yes (Death, Hospitalization)
  Sender: FDA-Public Use
  Company Number: 2010US002225

PATIENT
  Age: 60 Year
  Sex: Male

DRUGS (4)
  1. PROGRAF [Suspect]
     Indication: RENAL TRANSPLANT
     Dosage: 1 MG, BID, ORAL
     Route: 048
     Dates: start: 20090728, end: 20091117
  2. METOPROLOL SUCCINATE [Concomitant]
  3. TAMSULOSIN (TAMSULOSIN) FORMULATION UNKNOWN [Concomitant]
  4. VALCYTE [Concomitant]

REACTIONS (13)
  - ASCITES [None]
  - ASTHMA [None]
  - ATELECTASIS [None]
  - CANDIDIASIS [None]
  - HEPATIC CIRRHOSIS [None]
  - HEPATIC STEATOSIS [None]
  - INFECTION [None]
  - MALIGNANT PLEURAL EFFUSION [None]
  - METASTASES TO LUNG [None]
  - METASTATIC RENAL CELL CARCINOMA [None]
  - MULTI-ORGAN FAILURE [None]
  - ORTHOSTATIC HYPOTENSION [None]
  - RENAL FAILURE [None]
